FAERS Safety Report 8615282-X (Version None)
Quarter: 2012Q3

REPORT INFORMATION
  Report Type: 
  Country: None (occurrence: None)
  Receive Date: 20120823
  Receipt Date: 20120820
  Transmission Date: 20120928
  Serious: No
  Sender: FDA-Public Use
  Company Number: US-PFIZER INC-2012170666

PATIENT
  Age: 62 Year
  Sex: Female
  Weight: 51.2 kg

DRUGS (7)
  1. SUTENT [Suspect]
     Indication: METASTATIC RENAL CELL CARCINOMA
  2. NORVASC [Concomitant]
     Dosage: 10 MG, UNK
  3. SUTENT [Suspect]
     Indication: RENAL CANCER METASTATIC
     Dosage: 50 MG, CYCLIC
  4. COUMADIN [Concomitant]
     Dosage: UNK
  5. PEPCID [Concomitant]
     Dosage: UNK
  6. AMLODIPINE [Concomitant]
     Dosage: 10 MG, UNK
  7. PANTOPRAZOLE [Suspect]
     Dosage: UNK

REACTIONS (9)
  - EYELID OEDEMA [None]
  - DYSGEUSIA [None]
  - REFLUX GASTRITIS [None]
  - FEELING ABNORMAL [None]
  - SLEEP DISORDER [None]
  - EYE DISORDER [None]
  - DIARRHOEA [None]
  - NAUSEA [None]
  - CONTUSION [None]
